FAERS Safety Report 7931436-X (Version None)
Quarter: 2011Q4

REPORT INFORMATION
  Report Type: 
  Country: None (occurrence: None)
  Receive Date: 20111121
  Receipt Date: 20111111
  Transmission Date: 20120403
  Serious: Yes (Hospitalization)
  Sender: FDA-Public Use
  Company Number: US-ASTRAZENECA-2009SE25948

PATIENT
  Age: 59 Year
  Sex: Female

DRUGS (4)
  1. SEROQUEL [Suspect]
     Route: 048
  2. SEROQUEL [Suspect]
     Route: 048
  3. SEROQUEL [Suspect]
     Route: 048
  4. SEROQUEL [Suspect]
     Route: 048

REACTIONS (13)
  - NERVOUSNESS [None]
  - BIPOLAR DISORDER [None]
  - LOWER LIMB FRACTURE [None]
  - DEPRESSION [None]
  - INSOMNIA [None]
  - ANTIPSYCHOTIC DRUG LEVEL BELOW THERAPEUTIC [None]
  - ROAD TRAFFIC ACCIDENT [None]
  - APHAGIA [None]
  - LETHARGY [None]
  - DRUG DOSE OMISSION [None]
  - MANIA [None]
  - CRYING [None]
  - RESTLESSNESS [None]
